FAERS Safety Report 21875235 (Version 1)
Quarter: 2023Q1

REPORT INFORMATION
  Report Type: Report from Study
  Country: US (occurrence: US)
  Receive Date: 20230117
  Receipt Date: 20230117
  Transmission Date: 20230418
  Serious: No
  Sender: FDA-Public Use
  Company Number: US-ABBVIE-4236365

PATIENT
  Sex: Female

DRUGS (1)
  1. HUMIRA [Suspect]
     Active Substance: ADALIMUMAB
     Indication: Rheumatoid arthritis
     Dosage: FORM STRENGTH: 40 MG;?CITRATE FREE
     Route: 058

REACTIONS (4)
  - Pain [Unknown]
  - Paraesthesia [Unknown]
  - Erythema [Unknown]
  - Skin discolouration [Unknown]
